FAERS Safety Report 10257547 (Version 1)
Quarter: 2014Q2

REPORT INFORMATION
  Report Type: Spontaneous
  Country: FR (occurrence: None)
  Receive Date: 20140620
  Receipt Date: 20140620
  Transmission Date: 20141212
  Serious: Yes (Life-Threatening, Hospitalization)
  Sender: FDA-Public Use
  Company Number: SYM-2014-22051

PATIENT
  Age: 99 Year
  Sex: Female

DRUGS (7)
  1. FLAGYL (METRONIDAZOLE) (METRONIDAZOLE) [Suspect]
     Indication: PNEUMONIA
     Dates: start: 201312
  2. ROCEPHINE (CEFTRIAXONE SODIUM) (CEFTRIAXONE SODIUM) [Suspect]
     Indication: PNEUMONIA
     Dates: start: 201312
  3. DIFFU K (POTASSIUM CHLORIDE) [Concomitant]
  4. PREVISCAN (FLUINDIONE) [Concomitant]
  5. FUROSEMIDE (FUROSEMIDE) [Concomitant]
  6. FORLAX (MACROGOL) [Concomitant]
  7. VITABACT (PICLOXYDINE DIHYDROCHLORIDE) [Concomitant]

REACTIONS (4)
  - Circulatory collapse [None]
  - Dehydration [None]
  - Clostridium difficile colitis [None]
  - Blood pressure decreased [None]
